FAERS Safety Report 4474472-0 (Version None)
Quarter: 2004Q4

REPORT INFORMATION
  Report Type: 
  Country: None (occurrence: None)
  Receive Date: 20041014
  Receipt Date: 20031203
  Transmission Date: 20050328
  Serious: Yes (Other)
  Sender: FDA-Public Use
  Company Number: JP-GLAXOSMITHKLINE-B0316695A

PATIENT
  Age: 59 Year
  Sex: Female
  Weight: 47 kg

DRUGS (7)
  1. MELPHALAN [Suspect]
     Indication: AUTOLOGOUS BONE MARROW TRANSPLANTATION THERAPY
     Dosage: 140MG PER DAY
     Route: 042
     Dates: start: 20031201, end: 20031202
  2. FLUCONAZOLE [Suspect]
     Dosage: 200MG PER DAY
     Dates: start: 20031124, end: 20031203
  3. LEVOFLOXACIN [Suspect]
     Dosage: 300MG PER DAY
     Route: 048
     Dates: start: 20031124, end: 20031203
  4. AMOXICILLIN [Suspect]
     Dosage: 750MG PER DAY
     Route: 048
     Dates: start: 20031124, end: 20031203
  5. FAMOTIDINE [Concomitant]
  6. SULFAMETHOXAZOLE [Concomitant]
  7. ALENDRONATE SODIUM [Concomitant]

REACTIONS (1)
  - MYOCLONUS [None]
